FAERS Safety Report 15843341 (Version 2)
Quarter: 2019Q1

REPORT INFORMATION
  Report Type: Spontaneous
  Country: US (occurrence: US)
  Receive Date: 20190118
  Receipt Date: 20190130
  Transmission Date: 20190417
  Serious: No
  Sender: FDA-Public Use
  Company Number: US-AMGEN-USASP2019005361

PATIENT
  Age: 65 Year
  Sex: Female

DRUGS (2)
  1. PROLIA [Suspect]
     Active Substance: DENOSUMAB
     Indication: OSTEOPOROSIS POSTMENOPAUSAL
     Dosage: 60 MG, Q6MO
     Route: 065
     Dates: start: 201812
  2. SYNTHROID [Concomitant]
     Active Substance: LEVOTHYROXINE SODIUM
     Indication: THYROID HORMONES DECREASED
     Dosage: UNK

REACTIONS (9)
  - Diarrhoea [Recovered/Resolved]
  - Headache [Unknown]
  - Musculoskeletal stiffness [Unknown]
  - Herpes zoster [Unknown]
  - Paraesthesia [Unknown]
  - Muscle contracture [Unknown]
  - Drug hypersensitivity [Not Recovered/Not Resolved]
  - Ear pain [Unknown]
  - Muscle spasms [Unknown]
